FAERS Safety Report 8445468 (Version 3)
Quarter: 2012Q4

REPORT INFORMATION
  Report Type: 
  Country: US (occurrence: US)
  Receive Date: 20120307
  Receipt Date: 20120913
  Transmission Date: 20130627
  Serious: Yes (Other)
  Sender: FDA-Public Use
  Company Number: US-BAYER-2012-021851

PATIENT
  Age: 25 Year
  Sex: Female

DRUGS (9)
  1. YAZ [Suspect]
     Indication: CONTRACEPTION
     Dosage: UNK
     Dates: start: 200904, end: 200907
  2. CELESTONE [Concomitant]
     Dosage: 2 cc
     Dates: start: 20090430
  3. HYDROXYZINE [Concomitant]
     Dosage: UNK
     Dates: start: 20090430
  4. PHENIRAMIN [Concomitant]
     Dosage: 37.5 daily
     Dates: start: 20090511
  5. PROZAC [Concomitant]
     Dosage: 20 mg, daily
     Dates: start: 20090511
  6. VOLTAREN [Concomitant]
     Dosage: 75 b.i.d.
  7. DARVOCET [Concomitant]
     Dosage: PRN
  8. FLEXERIL [Concomitant]
     Dosage: 10 t.i.d.PRN
  9. ROBITUSSIN AC [CODEINE PHOSPHATE,GUAIFENESIN,PHENIRAMINE MALEATE] [Concomitant]
     Indication: COUGH
     Dosage: 10 ml, q4hr, PRN
     Route: 048

REACTIONS (5)
  - Cholelithiasis [None]
  - Emotional distress [None]
  - Anxiety [None]
  - Psychological trauma [None]
  - Chest pain [None]
